FAERS Safety Report 4374945-5 (Version None)
Quarter: 2004Q2

REPORT INFORMATION
  Report Type: 
  Country: None (occurrence: None)
  Receive Date: 20040603
  Receipt Date: 20031229
  Transmission Date: 20050107
  Serious: Yes (Hospitalization)
  Sender: FDA-Public Use
  Company Number: 200320132US

PATIENT
  Age: 57 Year
  Sex: Male
  Weight: 86.4 kg

DRUGS (7)
  1. LOVENOX [Suspect]
     Indication: MYOCARDIAL INFARCTION
     Dosage: 1 MG/KG BID
     Dates: start: 20031119
  2. LOVENOX [Suspect]
     Indication: STENT OCCLUSION
     Dosage: 1 MG/KG BID
     Dates: start: 20031119
  3. LOVENOX [Suspect]
     Indication: THROMBOSIS
     Dosage: 1 MG/KG BID
     Dates: start: 20031119
  4. LOVENOX [Suspect]
     Indication: MYOCARDIAL INFARCTION
     Dosage: 1 MG/KG Q8H
  5. LOVENOX [Suspect]
     Indication: STENT OCCLUSION
     Dosage: 1 MG/KG Q8H
  6. LOVENOX [Suspect]
     Indication: THROMBOSIS
     Dosage: 1 MG/KG Q8H
  7. WARFARIN SODIUM [Concomitant]

REACTIONS (1)
  - CORONARY ARTERY OCCLUSION [None]
